FAERS Safety Report 8880186 (Version 2)
Quarter: 2012Q4

REPORT INFORMATION
  Report Type: 
  Country: US (occurrence: US)
  Receive Date: 20121031
  Receipt Date: 20121227
  Transmission Date: 20130627
  Serious: No
  Sender: FDA-Public Use
  Company Number: US-ASTRAZENECA-2012SE79213

PATIENT
  Age: 61 Year
  Sex: Male
  Weight: 106.6 kg

DRUGS (9)
  1. CRESTOR [Suspect]
     Indication: BLOOD CHOLESTEROL
     Route: 048
     Dates: start: 2011, end: 20121015
  2. CRESTOR [Suspect]
     Indication: BLOOD CHOLESTEROL
     Route: 048
     Dates: start: 20121015
  3. ATENOLOL [Concomitant]
     Indication: BLOOD PRESSURE
  4. CITALOPRAM [Concomitant]
     Indication: ANXIETY
  5. CITALOPRAM [Concomitant]
     Indication: DEPRESSION
  6. HYDROCHLOROTHIAZIDE [Concomitant]
  7. LEVOTHYROXINE [Concomitant]
     Indication: THYROID DISORDER
  8. LISINOPRIL [Concomitant]
     Indication: ANGIOPATHY
  9. ALLOPURINOL [Concomitant]
     Indication: GOUT

REACTIONS (2)
  - Anxiety [Unknown]
  - Depression [Unknown]
